FAERS Safety Report 13562245 (Version 1)
Quarter: 2017Q2

REPORT INFORMATION
  Report Type: Report from Study
  Country: PL (occurrence: PL)
  Receive Date: 20170519
  Receipt Date: 20170519
  Transmission Date: 20170830
  Serious: Yes (Hospitalization)
  Sender: FDA-Public Use
  Company Number: PL-ASTRAZENECA-2014SE79629

PATIENT
  Age: 71 Year
  Sex: Male
  Weight: 100 kg

DRUGS (7)
  1. EXENATIDE [Suspect]
     Active Substance: EXENATIDE
     Indication: TYPE 2 DIABETES MELLITUS
     Route: 058
     Dates: start: 20120406
  2. LANTUS [Concomitant]
     Active Substance: INSULIN GLARGINE
     Indication: DIABETES MELLITUS
     Dosage: 14 IU, QD
     Route: 058
     Dates: start: 20111123
  3. TICLOPIDINE [Concomitant]
     Active Substance: TICLOPIDINE
  4. NITRATES [Concomitant]
     Active Substance: UNSPECIFIED INGREDIENT
  5. ASPIRIN. [Concomitant]
     Active Substance: ASPIRIN
     Dosage: 150 MG, UNK
  6. CLOPIDOGREL BISULFATE. [Concomitant]
     Active Substance: CLOPIDOGREL BISULFATE
  7. METFORMIN HYDROCHLORIDE. [Concomitant]
     Active Substance: METFORMIN HYDROCHLORIDE
     Indication: DIABETES MELLITUS
     Dosage: 1000 MG, INTERMITTENT1000.0MG INTERMITTENT
     Route: 048
     Dates: start: 2001

REACTIONS (1)
  - Gastrointestinal obstruction [Recovered/Resolved]

NARRATIVE: CASE EVENT DATE: 20140820
